FAERS Safety Report 6571931-1 (Version None)
Quarter: 2010Q1

REPORT INFORMATION
  Report Type: 
  Country: None (occurrence: None)
  Receive Date: 20100205
  Receipt Date: 20100127
  Transmission Date: 20100710
  Serious: Yes (Hospitalization)
  Sender: FDA-Public Use
  Company Number: US-B.I. PHARMACEUTICALS,INC./RIDGEFIELD-2010-BP-01003BP

PATIENT
  Age: 73 Year
  Sex: Male

DRUGS (1)
  1. VIRAMUNE [Suspect]
     Indication: PROPHYLAXIS

REACTIONS (1)
  - LIVER FUNCTION TEST ABNORMAL [None]
